FAERS Safety Report 15743184 (Version 3)
Quarter: 2019Q3

REPORT INFORMATION
  Report Type: Report from Study
  Country: US (occurrence: US)
  Receive Date: 20181220
  Receipt Date: 20190716
  Transmission Date: 20191004
  Serious: No
  Sender: FDA-Public Use
  Company Number: US-ROCHE-2231322

PATIENT
  Sex: Male
  Weight: 86.26 kg

DRUGS (1)
  1. OCREVUS [Suspect]
     Active Substance: OCRELIZUMAB
     Indication: PRIMARY PROGRESSIVE MULTIPLE SCLEROSIS
     Dosage: 600MG DESPENSE 2 OF 300MG VIALS
     Route: 042
     Dates: start: 20180719

REACTIONS (2)
  - Nasopharyngitis [Unknown]
  - Respiratory disorder [Not Recovered/Not Resolved]
